FAERS Safety Report 23258040 (Version 1)
Quarter: 2023Q4

REPORT INFORMATION
  Report Type: Spontaneous
  Country: US (occurrence: US)
  Receive Date: 20231204
  Receipt Date: 20231204
  Transmission Date: 20240110
  Serious: Yes (Other)
  Sender: FDA-Public Use
  Company Number: US-ENDO-CASE-0048339

PATIENT
  Sex: Male

DRUGS (2)
  1. BUPRENORPHINE HYDROCHLORIDE [Suspect]
     Active Substance: BUPRENORPHINE HYDROCHLORIDE
  2. BELBUCA [Suspect]
     Active Substance: BUPRENORPHINE HYDROCHLORIDE

REACTIONS (6)
  - Dependence [Unknown]
  - Drug withdrawal syndrome neonatal [Unknown]
  - Growth disorder [Unknown]
  - Overdose [Unknown]
  - Attention deficit hyperactivity disorder [Unknown]
  - Eye disorder [Unknown]
